FAERS Safety Report 8792579 (Version 2)
Quarter: 2015Q2

REPORT INFORMATION
  Report Type: Report from Study
  Country: US (occurrence: US)
  Receive Date: 20120918
  Receipt Date: 20150622
  Transmission Date: 20150821
  Serious: Yes (Death)
  Sender: FDA-Public Use
  Company Number: US-ROCHE-1129273

PATIENT
  Sex: Male

DRUGS (13)
  1. MAGNESIUM OXIDE. [Concomitant]
     Active Substance: MAGNESIUM OXIDE
     Route: 048
  2. CISPLATIN. [Concomitant]
     Active Substance: CISPLATIN
     Route: 042
  3. DEXAMETHASONE. [Concomitant]
     Active Substance: DEXAMETHASONE
     Route: 042
  4. NEULASTA [Concomitant]
     Active Substance: PEGFILGRASTIM
     Route: 058
  5. AVASTIN [Suspect]
     Active Substance: BEVACIZUMAB
     Indication: LUNG NEOPLASM MALIGNANT
     Route: 042
     Dates: start: 20080903
  6. AMBIEN [Concomitant]
     Active Substance: ZOLPIDEM TARTRATE
     Route: 048
  7. DARVON (UNITED STATES) [Concomitant]
     Route: 048
  8. LASIX [Concomitant]
     Active Substance: FUROSEMIDE
     Route: 042
  9. COMPAZINE [Concomitant]
     Active Substance: PROCHLORPERAZINE MALEATE
     Route: 048
  10. PALONOSETRON [Concomitant]
     Active Substance: PALONOSETRON
     Route: 042
  11. ARANESP [Concomitant]
     Active Substance: DARBEPOETIN ALFA
  12. GEMZAR [Concomitant]
     Active Substance: GEMCITABINE HYDROCHLORIDE
     Route: 042
  13. GRANISETRON HYDROCHLORIDE. [Concomitant]
     Active Substance: GRANISETRON HYDROCHLORIDE
     Route: 042

REACTIONS (5)
  - Fatigue [Unknown]
  - Death [Fatal]
  - Cough [Unknown]
  - Off label use [Unknown]
  - Nausea [Unknown]
